FAERS Safety Report 18288912 (Version 2)
Quarter: 2020Q3

REPORT INFORMATION
  Report Type: Spontaneous
  Country: CH (occurrence: CH)
  Receive Date: 20200921
  Receipt Date: 20200922
  Transmission Date: 20201103
  Serious: Yes (Other)
  Sender: FDA-Public Use
  Company Number: CH-PFIZER INC-2020362693

PATIENT
  Age: 49 Year
  Sex: Female

DRUGS (5)
  1. PANTOPRAZOLE [Suspect]
     Active Substance: PANTOPRAZOLE
     Indication: PROPHYLAXIS AGAINST GASTROINTESTINAL ULCER
     Dosage: 40 MILLIGRAM, TID
     Route: 048
     Dates: start: 20200811, end: 20200814
  2. IRFEN [Suspect]
     Active Substance: IBUPROFEN
     Indication: NECK PAIN
     Dosage: 600 MILLIGRAM, TID
     Route: 048
     Dates: start: 20200811, end: 20200814
  3. SIRDALUD [Suspect]
     Active Substance: TIZANIDINE
     Indication: NECK PAIN
  4. SIRDALUD [Suspect]
     Active Substance: TIZANIDINE
     Indication: MUSCLE SPASMS
     Dosage: 4 MILLIGRAM, QD
     Route: 048
     Dates: start: 20200811, end: 20200813
  5. PANTOPRAZOLE [Suspect]
     Active Substance: PANTOPRAZOLE
     Indication: NECK PAIN

REACTIONS (5)
  - Red blood cell sedimentation rate increased [Recovered/Resolved]
  - Polyarthritis [Recovered/Resolved]
  - Pyrexia [Recovered/Resolved]
  - Transaminases increased [Recovered/Resolved]
  - C-reactive protein increased [Recovered/Resolved]

NARRATIVE: CASE EVENT DATE: 20200811
